FAERS Safety Report 17344535 (Version 2)
Quarter: 2020Q1

REPORT INFORMATION
  Report Type: Spontaneous
  Country: DE (occurrence: DE)
  Receive Date: 20200129
  Receipt Date: 20200221
  Transmission Date: 20200409
  Serious: Yes (Hospitalization)
  Sender: FDA-Public Use
  Company Number: DE-MYLANLABS-2020M1010436

PATIENT
  Sex: Male
  Weight: 97 kg

DRUGS (5)
  1. ZESSLY [Suspect]
     Active Substance: INFLIXIMAB
     Indication: PROCTITIS
     Dosage: 450 MG, UNKNOWN
     Route: 042
     Dates: start: 20190620, end: 20190927
  2. PREDNISOLONE. [Concomitant]
     Active Substance: PREDNISOLONE
     Indication: COLITIS ULCERATIVE
     Dosage: 30 MILLIGRAM, QD
     Route: 048
     Dates: start: 201906, end: 201908
  3. AZATHIOPRINE. [Suspect]
     Active Substance: AZATHIOPRINE
     Indication: COLITIS
     Dosage: 100 MG, QD
     Route: 048
     Dates: start: 20190816, end: 20190913
  4. ZESSLY [Suspect]
     Active Substance: INFLIXIMAB
     Indication: COLITIS
  5. AZATHIOPRINE. [Suspect]
     Active Substance: AZATHIOPRINE
     Indication: PROCTITIS

REACTIONS (4)
  - Myalgia [Recovering/Resolving]
  - Product use in unapproved indication [Unknown]
  - Drug ineffective [Not Recovered/Not Resolved]
  - Colitis [Not Recovered/Not Resolved]

NARRATIVE: CASE EVENT DATE: 20190816
